FAERS Safety Report 18684910 (Version 1)
Quarter: 2020Q4

REPORT INFORMATION
  Report Type: Spontaneous
  Country: CN (occurrence: CN)
  Receive Date: 20201230
  Receipt Date: 20201230
  Transmission Date: 20210114
  Serious: Yes (Hospitalization, Other)
  Sender: FDA-Public Use
  Company Number: CN-JNJFOC-20201251842

PATIENT
  Age: 55 Year
  Sex: Male
  Weight: 61 kg

DRUGS (2)
  1. RIVAROXABAN [Suspect]
     Active Substance: RIVAROXABAN
     Dosage: UNK
     Route: 048
     Dates: start: 20201104, end: 20201104
  2. RIVAROXABAN [Suspect]
     Active Substance: RIVAROXABAN
     Indication: ATRIAL FIBRILLATION
     Dosage: 10 MG, QD
     Route: 048
     Dates: start: 20180721, end: 20201029

REACTIONS (7)
  - Haemoptysis [Recovered/Resolved]
  - Incorrect dose administered [Unknown]
  - Product prescribing issue [Unknown]
  - Haemoptysis [Recovered/Resolved]
  - Metastases to lung [Unknown]
  - Cough [Recovering/Resolving]
  - Productive cough [Not Recovered/Not Resolved]

NARRATIVE: CASE EVENT DATE: 20180721
